FAERS Safety Report 7979883-4 (Version None)
Quarter: 2011Q4

REPORT INFORMATION
  Report Type: 
  Country: None (occurrence: None)
  Receive Date: 20111214
  Receipt Date: 20111209
  Transmission Date: 20120403
  Serious: Yes (Hospitalization)
  Sender: FDA-Public Use
  Company Number: CA-TEVA-313257USA

PATIENT
  Sex: Male

DRUGS (1)
  1. METOPROLOL TARTRATE [Suspect]
     Indication: CARDIAC DISORDER
     Dosage: 150 MILLIGRAM; 2 TABLETS IN MORNING AND 1 TABLET AT BED
     Route: 048
     Dates: start: 20111202

REACTIONS (1)
  - SUPRAVENTRICULAR TACHYCARDIA [None]
